FAERS Safety Report 19019989 (Version 5)
Quarter: 2022Q2

REPORT INFORMATION
  Report Type: Spontaneous
  Country: DE (occurrence: DE)
  Receive Date: 20210317
  Receipt Date: 20220407
  Transmission Date: 20220720
  Serious: Yes (Hospitalization, Other)
  Sender: FDA-Public Use
  Company Number: DE-009507513-1702DEU011068

PATIENT
  Age: 29 Year
  Sex: Male

DRUGS (1)
  1. PROPECIA [Suspect]
     Active Substance: FINASTERIDE
     Indication: Alopecia
     Dosage: UNK
     Route: 048
     Dates: start: 20010411, end: 200106

REACTIONS (70)
  - Loss of libido [Recovered/Resolved]
  - Blood disorder [Unknown]
  - Disorientation [Unknown]
  - Social anxiety disorder [Unknown]
  - Blood testosterone increased [Recovering/Resolving]
  - Diverticulitis [Not Recovered/Not Resolved]
  - Acrophobia [Not Recovered/Not Resolved]
  - Agoraphobia [Unknown]
  - Insomnia [Unknown]
  - Adverse event [Unknown]
  - Diverticulum [Unknown]
  - Asthenia [Not Recovered/Not Resolved]
  - Somatic symptom disorder [Unknown]
  - Rash [Unknown]
  - Listless [Not Recovered/Not Resolved]
  - Abdominal hernia [Unknown]
  - Blood phosphorus decreased [Unknown]
  - Depression [Recovered/Resolved]
  - Fibroma [Unknown]
  - Alopecia [Unknown]
  - Feeling abnormal [Unknown]
  - Fatigue [Not Recovered/Not Resolved]
  - Depressive symptom [Unknown]
  - Anger [Unknown]
  - Hypersensitivity [Unknown]
  - Pruritus [Unknown]
  - Panic disorder [Unknown]
  - Thermophobia [Not Recovered/Not Resolved]
  - Cortisol free urine increased [Unknown]
  - Tinea versicolour [Unknown]
  - Seborrhoeic keratosis [Unknown]
  - Hypogonadism [Unknown]
  - Psychiatric symptom [Unknown]
  - Sigmoidectomy [Unknown]
  - Pain [Recovered/Resolved]
  - Loss of consciousness [Not Recovered/Not Resolved]
  - Erectile dysfunction [Not Recovered/Not Resolved]
  - Performance status decreased [Unknown]
  - Tinnitus [Unknown]
  - Alcohol abuse [Unknown]
  - Sexual dysfunction [Not Recovered/Not Resolved]
  - Libido decreased [Unknown]
  - Anxiety [Not Recovered/Not Resolved]
  - Depressed mood [Not Recovered/Not Resolved]
  - Disturbance in attention [Not Recovered/Not Resolved]
  - Obsessive-compulsive personality disorder [Unknown]
  - Norepinephrine increased [Unknown]
  - Herpes simplex [Unknown]
  - Fear of crowded places [Not Recovered/Not Resolved]
  - Vascular occlusion [Unknown]
  - Spermatozoa progressive motility decreased [Unknown]
  - Persistent depressive disorder [Unknown]
  - Diverticulitis [Unknown]
  - Pelvic floor muscle weakness [Unknown]
  - Sleep disorder [Unknown]
  - Mood swings [Unknown]
  - Panic attack [Recovered/Resolved]
  - Spermatozoa abnormal [Unknown]
  - Phonophobia [Not Recovered/Not Resolved]
  - Fatigue [Unknown]
  - Exercise tolerance increased [Not Recovered/Not Resolved]
  - Weight increased [Not Recovered/Not Resolved]
  - Loss of consciousness [Unknown]
  - Surgery [Unknown]
  - Phobia [Unknown]
  - Disinhibition [Unknown]
  - Vital capacity abnormal [Unknown]
  - Constipation [Unknown]
  - Head discomfort [Unknown]
  - Back pain [Unknown]

NARRATIVE: CASE EVENT DATE: 20010101
